FAERS Safety Report 9475973 (Version 2)
Quarter: 2013Q3

REPORT INFORMATION
  Report Type: Spontaneous
  Country: US (occurrence: US)
  Receive Date: 20130826
  Receipt Date: 20130829
  Transmission Date: 20140515
  Serious: Yes (Other)
  Sender: FDA-Public Use
  Company Number: US-PFIZER INC-2013245755

PATIENT
  Age: 51 Year
  Sex: Female
  Weight: 100.68 kg

DRUGS (8)
  1. LYRICA [Suspect]
     Dosage: 150 MG, 1X/DAY
     Route: 048
     Dates: end: 201308
  2. PROTONIX [Suspect]
     Indication: GASTROOESOPHAGEAL REFLUX DISEASE
     Dosage: 40 MG, 1X/DAY
     Route: 048
  3. PROTONIX [Suspect]
     Dosage: 40 MG, 2X/DAY
     Route: 048
  4. EFFEXOR [Concomitant]
     Dosage: 150 MG, UNK
  5. VITAMIN D [Concomitant]
     Dosage: UNK
  6. BIOTIN [Concomitant]
     Dosage: UNK
  7. ESTRADIOL [Concomitant]
     Dosage: 1 MG, 1X/DAY
  8. SINGULAIR [Concomitant]
     Dosage: 10 MG, 1X/DAY

REACTIONS (5)
  - Obesity [Unknown]
  - Weight decreased [Unknown]
  - Hypotension [Unknown]
  - Nausea [Unknown]
  - Vomiting [Unknown]
